FAERS Safety Report 12159021 (Version 6)
Quarter: 2016Q2

REPORT INFORMATION
  Report Type: Report from Study
  Country: DE (occurrence: DE)
  Receive Date: 20160308
  Receipt Date: 20160512
  Transmission Date: 20160815
  Serious: Yes (Hospitalization)
  Sender: FDA-Public Use
  Company Number: DE-TEVA-641808ACC

PATIENT
  Age: 81 Year
  Sex: Female
  Weight: 57 kg

DRUGS (10)
  1. MEROPENEM. [Concomitant]
     Active Substance: MEROPENEM
     Indication: BRONCHITIS
     Route: 065
  2. DIGITOXIN [Concomitant]
     Active Substance: DIGITOXIN
     Indication: ATRIAL FIBRILLATION
     Route: 065
  3. ACICLOVIR [Concomitant]
     Active Substance: ACYCLOVIR
     Indication: HERPES ZOSTER
     Route: 065
  4. BENDAMUSTINE HYDROCHLORIDE. [Suspect]
     Active Substance: BENDAMUSTINE HYDROCHLORIDE
     Indication: PLASMA CELL MYELOMA
     Dosage: (90 MG/M2 FOR 30 MINUTES ON DAY 1 AND DAY 2)
     Route: 042
     Dates: start: 20150911
  5. PREDNISOLONE. [Suspect]
     Active Substance: PREDNISOLONE
     Indication: PLASMA CELL MYELOMA
     Dosage: (60 MG/ME2 ON DAY 1, 2, 3, 4 ONCE ON DAY 29)
     Route: 048
     Dates: start: 20150911
  6. BORTEZOMIB [Suspect]
     Active Substance: BORTEZOMIB
     Indication: PLASMA CELL MYELOMA
     Dosage: (1.3 MG/ME2 ON DAY 1 ,4,8,11,22,25,29,32)
     Route: 058
     Dates: start: 20150911
  7. CIPROFLOXACIN. [Concomitant]
     Active Substance: CIPROFLOXACIN
     Indication: URINARY TRACT INFECTION
     Route: 065
  8. BISPHOSPHONATES [Concomitant]
     Active Substance: UNSPECIFIED INGREDIENT
     Indication: HYPERCALCAEMIA
     Dosage: IN 4 WEEKS
     Route: 065
     Dates: start: 20150825
  9. METOPROLOL. [Concomitant]
     Active Substance: METOPROLOL
     Indication: ATRIAL FIBRILLATION
     Route: 065
  10. UNACID                             /00903602/ [Concomitant]
     Indication: ESCHERICHIA INFECTION
     Route: 065

REACTIONS (1)
  - Chronic obstructive pulmonary disease [Not Recovered/Not Resolved]

NARRATIVE: CASE EVENT DATE: 20160229
